FAERS Safety Report 18341263 (Version 1)
Quarter: 2020Q4

REPORT INFORMATION
  Report Type: Spontaneous
  Country: FR (occurrence: FR)
  Receive Date: 20201003
  Receipt Date: 20201003
  Transmission Date: 20210113
  Serious: Yes (Hospitalization)
  Sender: FDA-Public Use
  Company Number: FR-TEVA-2020-FR-1833967

PATIENT
  Age: 64 Year
  Sex: Male

DRUGS (4)
  1. NATULAN [Suspect]
     Active Substance: PROCARBAZINE HYDROCHLORIDE
     Indication: CENTRAL NERVOUS SYSTEM LYMPHOMA
     Dosage: J1 A J7, 200MG
     Route: 048
     Dates: start: 20200120, end: 20200325
  2. VINCRISTINE TEVA [Suspect]
     Active Substance: VINCRISTINE
     Indication: CENTRAL NERVOUS SYSTEM LYMPHOMA
     Dosage: 4MG
     Route: 041
     Dates: start: 20200120, end: 20200319
  3. METHOTREXATE MYLAN [Suspect]
     Active Substance: METHOTREXATE SODIUM
     Indication: CENTRAL NERVOUS SYSTEM LYMPHOMA
     Dosage: J1, J15, 7MG/KG
     Route: 041
     Dates: start: 20200120, end: 20200319
  4. RIXATHON [Suspect]
     Active Substance: RITUXIMAB
     Indication: CENTRAL NERVOUS SYSTEM LYMPHOMA
     Dosage: J1, 700MG
     Route: 041
     Dates: start: 20200120, end: 20200319

REACTIONS (4)
  - Coronavirus infection [Recovered/Resolved with Sequelae]
  - Interstitial lung disease [Not Recovered/Not Resolved]
  - Superinfection bacterial [Recovered/Resolved]
  - Oxygen saturation decreased [Not Recovered/Not Resolved]

NARRATIVE: CASE EVENT DATE: 202003
